FAERS Safety Report 4317549-2 (Version None)
Quarter: 2004Q1

REPORT INFORMATION
  Report Type: 
  Country: None (occurrence: None)
  Receive Date: 20040312
  Receipt Date: 20040301
  Transmission Date: 20041129
  Serious: Yes (Hospitalization, Other)
  Sender: FDA-Public Use
  Company Number: US-JNJFOC-20040300629

PATIENT

DRUGS (1)
  1. DURAGESIC [Suspect]
     Indication: INTENTIONAL MISUSE
     Dosage: SEE IMAGE

REACTIONS (2)
  - HEPATIC ENZYME INCREASED [None]
  - INTENTIONAL MISUSE [None]
